FAERS Safety Report 11364742 (Version 1)
Quarter: 2015Q3

REPORT INFORMATION
  Report Type: Spontaneous
  Country: US (occurrence: None)
  Receive Date: 20150810
  Receipt Date: 20150810
  Transmission Date: 20151125
  Serious: Yes (Other)
  Sender: FDA-Public Use
  Company Number: None

PATIENT
  Age: 50 Year
  Sex: Female
  Weight: 55.34 kg

DRUGS (3)
  1. AZACOL [Concomitant]
  2. SYNTHROID [Concomitant]
     Active Substance: LEVOTHYROXINE SODIUM
  3. FLUCONAZOLE 150 MG [Suspect]
     Active Substance: FLUCONAZOLE
     Indication: FUNGAL INFECTION
     Route: 048
     Dates: start: 20150801, end: 20150801

REACTIONS (7)
  - Erythema of eyelid [None]
  - Burning sensation [None]
  - Blister [None]
  - Eyelid oedema [None]
  - Eyelids pruritus [None]
  - Eyelid irritation [None]
  - Pain [None]

NARRATIVE: CASE EVENT DATE: 20150801
